FAERS Safety Report 24406143 (Version 1)
Quarter: 2024Q4

REPORT INFORMATION
  Report Type: Other
  Country: CA (occurrence: CA)
  Receive Date: 20241007
  Receipt Date: 20241007
  Transmission Date: 20250115
  Serious: Yes (Life-Threatening, Hospitalization, Other)
  Sender: PFIZER
  Company Number: CA-PFIZER INC-202400267983

PATIENT
  Sex: Male
  Weight: 1 kg

DRUGS (5)
  1. EPINEPHRINE [Suspect]
     Active Substance: EPINEPHRINE
     Dosage: UNK
     Route: 064
  2. HEPARIN SODIUM [Suspect]
     Active Substance: HEPARIN SODIUM
     Dosage: UNK
     Route: 064
  3. BETAMETHASONE [Suspect]
     Active Substance: BETAMETHASONE
     Indication: Abnormal organ maturation
     Dosage: UNK
     Route: 064
  4. EPOPROSTENOL [Suspect]
     Active Substance: EPOPROSTENOL
     Indication: Pulmonary arterial hypertension
     Dosage: UNK
     Route: 064
  5. SILDENAFIL [Suspect]
     Active Substance: SILDENAFIL
     Indication: Pulmonary arterial hypertension
     Dosage: UNK
     Route: 064

REACTIONS (3)
  - Foetal exposure during pregnancy [Unknown]
  - Low birth weight baby [Unknown]
  - Premature delivery [Unknown]
